FAERS Safety Report 5452806-8 (Version None)
Quarter: 2007Q3

REPORT INFORMATION
  Report Type: 
  Country: None (occurrence: None)
  Receive Date: 20070914
  Receipt Date: 20070905
  Transmission Date: 20080115
  Serious: Yes (Other)
  Sender: FDA-Public Use
  Company Number: US-ELI_LILLY_AND_COMPANY-US200708001587

PATIENT
  Age: 60 Year
  Sex: Female
  Weight: 81.632 kg

DRUGS (4)
  1. CYMBALTA [Suspect]
     Dosage: 60 MG, DAILY (1/D)
     Route: 048
     Dates: start: 20060728, end: 20070114
  2. CYMBALTA [Suspect]
     Dosage: 30 MG, DAILY (1/D)
     Route: 048
     Dates: start: 20070115, end: 20070301
  3. LISINOPRIL [Concomitant]
  4. CELEBREX [Concomitant]

REACTIONS (1)
  - HYPERMETROPIA [None]
